FAERS Safety Report 6086553-9 (Version None)
Quarter: 2009Q1

REPORT INFORMATION
  Report Type: 
  Country: None (occurrence: None)
  Receive Date: 20090223
  Receipt Date: 20090219
  Transmission Date: 20090719
  Serious: Yes (Life-Threatening, Hospitalization, Other)
  Sender: FDA-Public Use
  Company Number: CH-BRISTOL-MYERS SQUIBB COMPANY-14512453

PATIENT
  Age: 67 Year
  Sex: Female

DRUGS (2)
  1. QUANTALAN [Suspect]
     Indication: DIARRHOEA
     Dosage: 8JAN09-25JAN08(18DAYS) AND ALSO ON 26JAN09-CONT. DOSE REGIMEN:6 PER 1 DAY.
     Route: 048
     Dates: start: 20090108
  2. ELTROXIN [Interacting]
     Indication: HYPOTHYROIDISM
     Route: 048

REACTIONS (2)
  - DRUG INTERACTION [None]
  - HYPOTHYROIDISM [None]
